FAERS Safety Report 8941991 (Version 2)
Quarter: 2012Q4

REPORT INFORMATION
  Report Type: 
  Country: US (occurrence: US)
  Receive Date: 20121130
  Receipt Date: 20121218
  Transmission Date: 20130627
  Serious: No
  Sender: FDA-Public Use
  Company Number: US-PFIZER INC-2012299208

PATIENT
  Age: 58 Year
  Sex: Female
  Weight: 90.7 kg

DRUGS (4)
  1. ZOLOFT [Suspect]
     Indication: DEPRESSION
     Dosage: 200 mg, daily
     Route: 048
     Dates: start: 1980, end: 201211
  2. METFORMIN HCL [Suspect]
     Indication: DIABETES
     Dosage: 500 mg, 2x/day
  3. METFORMIN HCL [Suspect]
     Dosage: 1000 mg, 2x/day
  4. VITAMIN D [Concomitant]
     Indication: VITAMIN D DECREASED
     Dosage: 1.25 mg, once a week

REACTIONS (3)
  - Drug ineffective [Unknown]
  - Blood glucose increased [Unknown]
  - Dizziness [Unknown]
